FAERS Safety Report 14658472 (Version 1)
Quarter: 2018Q1

REPORT INFORMATION
  Report Type: Spontaneous
  Country: US (occurrence: US)
  Receive Date: 20180320
  Receipt Date: 20180320
  Transmission Date: 20180509
  Serious: No
  Sender: FDA-Public Use
  Company Number: US-PFIZER INC-2018109553

PATIENT
  Sex: Male

DRUGS (1)
  1. QUILLICHEW ER [Suspect]
     Active Substance: METHYLPHENIDATE HYDROCHLORIDE
     Dosage: 40 MG, UNK
     Dates: start: 20180208

REACTIONS (4)
  - Drug ineffective [Unknown]
  - Aggression [Unknown]
  - Anger [Unknown]
  - Abnormal behaviour [Unknown]
